FAERS Safety Report 10541373 (Version 2)
Quarter: 2014Q4

REPORT INFORMATION
  Report Type: Spontaneous
  Country: US (occurrence: None)
  Receive Date: 20141010
  Receipt Date: 20141205
  Transmission Date: 20150529
  Serious: Yes (Other)
  Sender: FDA-Public Use
  Company Number: 163-POMAL-14075040

PATIENT
  Age: 73 Year
  Sex: Male

DRUGS (1)
  1. POMALYST [Suspect]
     Active Substance: POMALIDOMIDE
     Indication: PLASMA CELL MYELOMA
     Dosage: 3 MG, 21 IN 21 D
     Route: 048
     Dates: start: 20140715, end: 20140722

REACTIONS (5)
  - Oedema peripheral [None]
  - Pruritus [None]
  - Constipation [None]
  - Gastric disorder [None]
  - Urticaria [None]

NARRATIVE: CASE EVENT DATE: 2014
